FAERS Safety Report 6085247-3 (Version None)
Quarter: 2009Q1

REPORT INFORMATION
  Report Type: 
  Country: None (occurrence: None)
  Receive Date: 20090218
  Receipt Date: 20090209
  Transmission Date: 20090719
  Serious: Yes (Other)
  Sender: FDA-Public Use
  Company Number: 2009SP001113

PATIENT
  Age: 55 Year
  Sex: Male

DRUGS (2)
  1. CELESTONE SOLUSPAN [Suspect]
     Indication: NERVE BLOCK
     Dates: start: 20081031
  2. LIDOCAINE [Suspect]
     Indication: NERVE BLOCK
     Dates: start: 20081031

REACTIONS (11)
  - CHILLS [None]
  - CONFUSIONAL STATE [None]
  - DISORIENTATION [None]
  - DYSSTASIA [None]
  - HEADACHE [None]
  - HYPOAESTHESIA [None]
  - INJECTION SITE PAIN [None]
  - INSOMNIA [None]
  - MUSCULOSKELETAL PAIN [None]
  - NECK PAIN [None]
  - PAIN [None]
